FAERS Safety Report 13012844 (Version 1)
Quarter: 2016Q4

REPORT INFORMATION
  Report Type: Spontaneous
  Country: GR (occurrence: GR)
  Receive Date: 20161209
  Receipt Date: 20161209
  Transmission Date: 20170207
  Serious: Yes (Other)
  Sender: FDA-Public Use
  Company Number: GR-PFIZER INC-2016565708

PATIENT
  Sex: Male

DRUGS (1)
  1. CARDURA [Suspect]
     Active Substance: DOXAZOSIN MESYLATE
     Dosage: UNK

REACTIONS (3)
  - Renal impairment [Unknown]
  - Dysuria [Unknown]
  - Blood creatinine increased [Unknown]
